FAERS Safety Report 8406530-X (Version None)
Quarter: 2012Q2

REPORT INFORMATION
  Report Type: 
  Country: None (occurrence: None)
  Receive Date: 20120529
  Receipt Date: 20070509
  Transmission Date: 20120825
  Serious: Yes (Other)
  Sender: FDA-Public Use
  Company Number: JP-2012-14720

PATIENT
  Age: 53 Year
  Sex: Male

DRUGS (1)
  1. TOLVAPTAN (TOLVAPTAN) TABLET [Suspect]
     Dosage: 15 MG MILLIGRAM(S), BID

REACTIONS (2)
  - DRUG HYPERSENSITIVITY [None]
  - DEPRESSION [None]
